FAERS Safety Report 16756673 (Version 1)
Quarter: 2019Q3

REPORT INFORMATION
  Report Type: Spontaneous
  Country: CA (occurrence: CA)
  Receive Date: 20190829
  Receipt Date: 20190829
  Transmission Date: 20191005
  Serious: Yes (Death)
  Sender: FDA-Public Use
  Company Number: CA-TEVA-2019-CA-1099351

PATIENT
  Age: 58 Year
  Sex: Male
  Weight: 82 kg

DRUGS (8)
  1. HYDROMORPHONE [Concomitant]
     Active Substance: HYDROMORPHONE
  2. ZOPICLONE [Concomitant]
     Active Substance: ZOPICLONE
  3. DIAZEPAM. [Concomitant]
     Active Substance: DIAZEPAM
  4. OXAZEPAM. [Concomitant]
     Active Substance: OXAZEPAM
  5. DIPHENHYDRAMINE. [Concomitant]
     Active Substance: DIPHENHYDRAMINE
  6. QUETIAPINE. [Concomitant]
     Active Substance: QUETIAPINE
  7. RABEPRAZOLE [Concomitant]
     Active Substance: RABEPRAZOLE
  8. MORPHINE [Suspect]
     Active Substance: MORPHINE
     Indication: PRODUCT USED FOR UNKNOWN INDICATION
     Route: 065

REACTIONS (1)
  - Accidental death [Fatal]
